FAERS Safety Report 8112136-2 (Version None)
Quarter: 2012Q1

REPORT INFORMATION
  Report Type: 
  Country: None (occurrence: None)
  Receive Date: 20120203
  Receipt Date: 20120130
  Transmission Date: 20120608
  Serious: Yes (Hospitalization)
  Sender: FDA-Public Use
  Company Number: US-BAYER-2011-109349

PATIENT
  Age: 16 Year
  Sex: Female
  Weight: 71.655 kg

DRUGS (7)
  1. MULTIVITAMIN PREPARATION + MINERAL SUPPLEMENT [Concomitant]
  2. ZYRTEC [Concomitant]
  3. BEYAZ [Suspect]
     Indication: CONTRACEPTION
     Dosage: UNK
     Dates: start: 20110208, end: 20110713
  4. ZITHROMAX [Concomitant]
     Dosage: 2-PACK, RX G
     Dates: start: 20110708
  5. CYMBALTA [Concomitant]
     Dosage: UNK UNK, QD
     Route: 048
  6. IBUPROFEN [Concomitant]
     Dosage: UNK UNK, PRN
  7. VENTOLIN [Concomitant]
     Dosage: UNK UNK, PRN

REACTIONS (5)
  - PULMONARY EMBOLISM [None]
  - HEAD INJURY [None]
  - CHEST PAIN [None]
  - DYSPNOEA [None]
  - SYNCOPE [None]
